FAERS Safety Report 5909392-5 (Version None)
Quarter: 2008Q4

REPORT INFORMATION
  Report Type: 
  Country: None (occurrence: None)
  Receive Date: 20081006
  Receipt Date: 20080930
  Transmission Date: 20090506
  Serious: No
  Sender: FDA-Public Use
  Company Number: US-B.I. PHARMACEUTICALS,INC./RIDGEFIELD-2008-BP-12676BP

PATIENT
  Sex: Male

DRUGS (4)
  1. MICARDIS HCT [Suspect]
     Indication: HYPERTENSION
     Route: 048
     Dates: start: 20080730
  2. ASPIRIN [Concomitant]
     Indication: PROPHYLAXIS
     Dosage: 81MG
  3. MULTI-VITAMIN [Concomitant]
     Dosage: 1/ DAY
  4. LUTIEN [Concomitant]
     Indication: EYE DISORDER

REACTIONS (1)
  - BLOOD PRESSURE INCREASED [None]
